FAERS Safety Report 24870049 (Version 1)
Quarter: 2025Q1

REPORT INFORMATION
  Report Type: Spontaneous
  Country: US (occurrence: US)
  Receive Date: 20250121
  Receipt Date: 20250121
  Transmission Date: 20250408
  Serious: No
  Sender: JOHNSON AND JOHNSON
  Company Number: US-KENVUE-20241101054

PATIENT
  Sex: Female

DRUGS (1)
  1. ACETAMINOPHEN [Suspect]
     Active Substance: ACETAMINOPHEN
     Indication: Product used for unknown indication
     Dosage: USUALLY TAKE TYLENOL EXTRA STRENGTH FOR 2 CAPLETS EVERY 6 HOURS, AND TOOK IT FOR 4 DAYS
     Route: 065

REACTIONS (2)
  - Drug ineffective [Unknown]
  - Product label issue [Unknown]
